FAERS Safety Report 9079937 (Version 2)
Quarter: 2013Q1

REPORT INFORMATION
  Report Type: Spontaneous
  Country: JP (occurrence: JP)
  Receive Date: 20130130
  Receipt Date: 20130218
  Transmission Date: 20140127
  Serious: Yes (Hospitalization)
  Sender: FDA-Public Use
  Company Number: JP-TEVA-382414ISR

PATIENT
  Age: 51 Year
  Sex: Female

DRUGS (7)
  1. PREDNISOLONE [Suspect]
     Indication: DERMATOMYOSITIS
     Dosage: 50 MILLIGRAM DAILY;
     Route: 065
  2. PREDNISOLONE [Suspect]
     Indication: DERMATOMYOSITIS
     Dosage: 40 MILLIGRAM DAILY;
     Route: 065
  3. PREDNISOLONE [Suspect]
     Indication: DERMATOMYOSITIS
     Dosage: 30 MILLIGRAM DAILY;
     Route: 065
  4. PREDNISOLONE [Suspect]
     Indication: DERMATOMYOSITIS
     Dosage: 27.5 MILLIGRAM DAILY;
     Route: 065
  5. PREDNISOLONE [Suspect]
     Dosage: PULSE THERAPY
     Route: 065
  6. TACROLIMUS [Suspect]
     Indication: DERMATOMYOSITIS
     Dosage: 3 MILLIGRAM DAILY;
     Route: 065
  7. TACROLIMUS [Suspect]
     Indication: DERMATOMYOSITIS
     Dosage: 2.5 MILLIGRAM DAILY;
     Route: 065

REACTIONS (3)
  - Posterior reversible encephalopathy syndrome [Recovering/Resolving]
  - Scleroderma renal crisis [Not Recovered/Not Resolved]
  - Thrombocytopenia [Unknown]
